FAERS Safety Report 20310150 (Version 1)
Quarter: 2022Q1

REPORT INFORMATION
  Report Type: Spontaneous
  Country: CA (occurrence: CA)
  Receive Date: 20220107
  Receipt Date: 20220107
  Transmission Date: 20220423
  Serious: Yes (Other)
  Sender: FDA-Public Use
  Company Number: None

PATIENT
  Age: 44 Year
  Sex: Female
  Weight: 63 kg

DRUGS (78)
  1. HYDROXYCHLOROQUINE SULFATE [Suspect]
     Active Substance: HYDROXYCHLOROQUINE SULFATE
     Dosage: UNK
  2. TRIMETHOPRIM [Suspect]
     Active Substance: TRIMETHOPRIM
  3. AMOXICILLIN [Suspect]
     Active Substance: AMOXICILLIN
     Dosage: UNK
  4. PANTOPRAZOLE [Suspect]
     Active Substance: PANTOPRAZOLE
     Dosage: UNK
     Route: 048
  5. LEFLUNOMIDE [Suspect]
     Active Substance: LEFLUNOMIDE
  6. MELOXICAM [Suspect]
     Active Substance: MELOXICAM
     Dosage: UNK
  7. MELOXICAM [Suspect]
     Active Substance: MELOXICAM
     Dosage: 150 MG, QD,1 EVERY 1 DAYS
  8. PREGABALIN [Suspect]
     Active Substance: PREGABALIN
     Dosage: 150 MG, QD, 1 EVERY 1 DAYS
     Route: 048
  9. PREGABALIN [Suspect]
     Active Substance: PREGABALIN
     Dosage: 150 MG, BID,2 EVERY 1 DAYS
     Route: 048
  10. PREGABALIN [Suspect]
     Active Substance: PREGABALIN
     Dosage: 300 MG, QD,1 EVERY 1 DAYS
     Route: 048
  11. NAPROXEN [Suspect]
     Active Substance: NAPROXEN
     Dosage: 250 MG, BID, 2 EVERY 1 DAYS
     Route: 048
  12. NAPROXEN [Suspect]
     Active Substance: NAPROXEN
     Dosage: 250 MG
     Route: 048
  13. NAPROXEN [Suspect]
     Active Substance: NAPROXEN
     Dosage: 1000 MG, QD, 1 EVERY 1 DAYS
  14. NAPROXEN [Suspect]
     Active Substance: NAPROXEN
     Dosage: 500 MG, BID, 2 EVERY 1 DAYS
     Route: 048
  15. NAPROXEN [Suspect]
     Active Substance: NAPROXEN
     Dosage: 500 MG, BID, 2 EVERY 1 DAYS
  16. NAPROXEN [Suspect]
     Active Substance: NAPROXEN
     Dosage: 1000 MG, QD, 1 EVERY 1 DAYS
     Route: 048
  17. NAPROXEN [Suspect]
     Active Substance: NAPROXEN
     Dosage: 500 MG, QD, 1 EVERY 1 DAYS
  18. NAPROXEN [Suspect]
     Active Substance: NAPROXEN
     Dosage: 500 MG, QD, 1 EVERY 1 DAYS
     Route: 048
  19. NAPROXEN [Suspect]
     Active Substance: NAPROXEN
     Dosage: 250 MG, BID, 2 EVERY 1 DAYS
  20. PREDNISONE [Suspect]
     Active Substance: PREDNISONE
     Dosage: 150 MG, QD, 1 EVERY 1 DAYS
     Route: 048
  21. PREDNISONE [Suspect]
     Active Substance: PREDNISONE
     Dosage: UNK
     Route: 048
  22. PREDNISONE [Suspect]
     Active Substance: PREDNISONE
     Dosage: 15 MG, QD,1 EVERY 1 DAYS
     Route: 048
  23. ALLOPURINOL [Suspect]
     Active Substance: ALLOPURINOL
     Dosage: 75 MG, QD, 1 EVERY 1 DAYS
     Route: 048
  24. ESOMEPRAZOLE [Suspect]
     Active Substance: ESOMEPRAZOLE
     Dosage: UNK
  25. SULFASALAZINE [Suspect]
     Active Substance: SULFASALAZINE
     Dosage: 1 G, QD, 1 EVERY 1 DAYS
     Route: 048
  26. SULFASALAZINE [Suspect]
     Active Substance: SULFASALAZINE
     Dosage: 1000 MG, QW
     Route: 048
  27. SULFASALAZINE [Suspect]
     Active Substance: SULFASALAZINE
     Dosage: 1 G, QD,1 EVERY 1 DAYS
     Route: 048
  28. ARAVA [Suspect]
     Active Substance: LEFLUNOMIDE
     Dosage: UNK
     Route: 048
  29. ARAVA [Suspect]
     Active Substance: LEFLUNOMIDE
     Dosage: UNK
  30. RANITIDINE [Suspect]
     Active Substance: RANITIDINE
     Dosage: 150 MG, BID, 2 EVERY 1 DAYS
     Route: 048
  31. RANITIDINE [Suspect]
     Active Substance: RANITIDINE
     Dosage: 300 MG, QD, 1 EVERY 1 DAYS
     Route: 048
  32. ACETAMINOPHEN [Suspect]
     Active Substance: ACETAMINOPHEN
  33. ALENDRONIC ACID [Suspect]
     Active Substance: ALENDRONIC ACID
     Route: 048
  34. ALENDRONIC ACID [Suspect]
     Active Substance: ALENDRONIC ACID
     Dosage: UNK
  35. ALENDRONATE SODIUM [Suspect]
     Active Substance: ALENDRONATE SODIUM
     Dosage: UNK
  36. METHOTREXATE [Suspect]
     Active Substance: METHOTREXATE
     Indication: Rheumatoid arthritis
     Dosage: 20 MG, QD,1 EVERY 1 WEEKS
     Route: 058
  37. METHOTREXATE [Suspect]
     Active Substance: METHOTREXATE
     Dosage: 20 MG
     Route: 058
  38. METHOTREXATE [Suspect]
     Active Substance: METHOTREXATE
     Dosage: UNK
     Route: 058
  39. METHOTREXATE [Suspect]
     Active Substance: METHOTREXATE
     Dosage: 20 MG, QW,1 EVERY 1 WEEKS
     Route: 048
  40. ENBREL [Suspect]
     Active Substance: ETANERCEPT
     Indication: Rheumatoid arthritis
     Dosage: 50 G, QD, 1 EVERY 1 DAYS
     Route: 058
  41. ENBREL [Suspect]
     Active Substance: ETANERCEPT
     Dosage: 50 MG, QW,1 EVERY 1 WEEKS
     Route: 058
  42. ENBREL [Suspect]
     Active Substance: ETANERCEPT
     Dosage: 50 MG, QW,1 EVERY 1 WEEKS
     Route: 058
  43. ENBREL [Suspect]
     Active Substance: ETANERCEPT
     Dosage: 50 MG, QD, 1 EVERY 1 DAYS
     Route: 058
  44. TOFACITINIB [Suspect]
     Active Substance: TOFACITINIB
     Dosage: 2 MG, BID, 2 EVERY 1 DAYS
     Route: 048
  45. TOFACITINIB [Suspect]
     Active Substance: TOFACITINIB
     Dosage: 5 MG, BID
     Route: 048
  46. TOFACITINIB [Suspect]
     Active Substance: TOFACITINIB
     Dosage: 2 DF, QD
     Route: 048
  47. TOFACITINIB [Suspect]
     Active Substance: TOFACITINIB
     Dosage: 2 MG, QD
     Route: 048
  48. TOFACITINIB [Suspect]
     Active Substance: TOFACITINIB
     Dosage: 1 EVERY 1 DAYS
     Route: 048
  49. TOFACITINIB [Suspect]
     Active Substance: TOFACITINIB
     Route: 048
  50. AZATHIOPRINE [Suspect]
     Active Substance: AZATHIOPRINE
     Dosage: 150 MG
  51. ESOMEPRAZOLE MAGNESIUM\NAPROXEN [Suspect]
     Active Substance: ESOMEPRAZOLE MAGNESIUM\NAPROXEN
     Dosage: UNK
     Route: 048
  52. ACETAMINOPHEN\OXYCODONE HYDROCHLORIDE [Suspect]
     Active Substance: ACETAMINOPHEN\OXYCODONE HYDROCHLORIDE
     Dosage: UNK
  53. AMITRIPTYLINE [Suspect]
     Active Substance: AMITRIPTYLINE
     Dosage: 75 MG, QD, 1 EVERY 1 DAYS
     Route: 048
  54. PANTOPRAZOLE SODIUM [Suspect]
     Active Substance: PANTOPRAZOLE SODIUM
  55. PANTOPRAZOLE SODIUM [Suspect]
     Active Substance: PANTOPRAZOLE SODIUM
     Dosage: UNK
     Route: 048
  56. IMURAN [Suspect]
     Active Substance: AZATHIOPRINE
     Dosage: 150 MG
  57. ACTEMRA [Suspect]
     Active Substance: TOCILIZUMAB
  58. PLAQUENIL [Concomitant]
     Active Substance: HYDROXYCHLOROQUINE SULFATE
     Dosage: UNK
  59. BACTRIM [Suspect]
     Active Substance: SULFAMETHOXAZOLE\TRIMETHOPRIM
     Dosage: UNK
  60. CODEINE [Concomitant]
     Active Substance: CODEINE
  61. REMICADE [Suspect]
     Active Substance: INFLIXIMAB
     Dosage: UNK
     Route: 042
  62. ADALIMUMAB [Suspect]
     Active Substance: ADALIMUMAB
     Dosage: UNK
     Route: 058
  63. METHYLPREDNISOLONE ACETATE [Suspect]
     Active Substance: METHYLPREDNISOLONE ACETATE
     Dosage: UNK
     Route: 014
  64. HUMIRA [Suspect]
     Active Substance: ADALIMUMAB
     Dosage: 40 MG
     Route: 058
  65. GOLD [Suspect]
     Active Substance: GOLD
  66. RITUXIMAB [Suspect]
     Active Substance: RITUXIMAB
  67. SEPTRA [Suspect]
     Active Substance: SULFAMETHOXAZOLE\TRIMETHOPRIM
  68. SEPTRA [Suspect]
     Active Substance: SULFAMETHOXAZOLE\TRIMETHOPRIM
     Dosage: UNK
  69. SIMPONI [Suspect]
     Active Substance: GOLIMUMAB
     Route: 058
  70. CIMZIA [Suspect]
     Active Substance: CERTOLIZUMAB PEGOL
  71. ABATACEPT [Concomitant]
     Active Substance: ABATACEPT
     Dosage: 125 MG, QD,1 EVERY 1 DAYS
     Route: 058
  72. DEXLANSOPRAZOLE [Concomitant]
     Active Substance: DEXLANSOPRAZOLE
     Dosage: 60 MG, QD, 1 EVERY 1 DAYS
  73. SULFAMETHOXAZOLE\TRIMETHOPRIM [Concomitant]
     Active Substance: SULFAMETHOXAZOLE\TRIMETHOPRIM
  74. CANNABIS SATIVA FLOWERING TOP [Concomitant]
     Active Substance: CANNABIS SATIVA FLOWERING TOP
     Dosage: 1 G, QD, 1 EVERY 1 DAYS
  75. ACETAMINOPHEN [Concomitant]
     Active Substance: ACETAMINOPHEN
     Dosage: UNK
  76. LEVOTHYROXINE [Concomitant]
     Active Substance: LEVOTHYROXINE
     Dosage: 175 UG, QD, 1 EVERY 1 DAYS
  77. CELEBREX [Concomitant]
     Active Substance: CELECOXIB
     Dosage: UNK
  78. FOLIC ACID [Concomitant]
     Active Substance: FOLIC ACID

REACTIONS (80)
  - Rash maculo-papular [Not Recovered/Not Resolved]
  - Bursitis [Not Recovered/Not Resolved]
  - Interstitial lung disease [Not Recovered/Not Resolved]
  - Arthralgia [Not Recovered/Not Resolved]
  - Tenderness [Not Recovered/Not Resolved]
  - Pneumonia [Not Recovered/Not Resolved]
  - Synovial cyst [Not Recovered/Not Resolved]
  - Drug intolerance [Unknown]
  - Rash pruritic [Not Recovered/Not Resolved]
  - Tenosynovitis stenosans [Not Recovered/Not Resolved]
  - Skin ulcer [Not Recovered/Not Resolved]
  - Eye pain [Not Recovered/Not Resolved]
  - Pain in extremity [Not Recovered/Not Resolved]
  - Crepitations [Not Recovered/Not Resolved]
  - Musculoskeletal pain [Not Recovered/Not Resolved]
  - Photophobia [Not Recovered/Not Resolved]
  - Ocular hyperaemia [Not Recovered/Not Resolved]
  - Pain [Not Recovered/Not Resolved]
  - Arthritis [Not Recovered/Not Resolved]
  - Rheumatoid nodule [Not Recovered/Not Resolved]
  - Scleritis [Not Recovered/Not Resolved]
  - White blood cell count decreased [Not Recovered/Not Resolved]
  - Malaise [Not Recovered/Not Resolved]
  - Dry mouth [Not Recovered/Not Resolved]
  - Synovial fluid analysis [Not Recovered/Not Resolved]
  - Tenosynovitis [Not Recovered/Not Resolved]
  - Bone density decreased [Not Recovered/Not Resolved]
  - Dyspnoea [Not Recovered/Not Resolved]
  - C-reactive protein increased [Not Recovered/Not Resolved]
  - Wheezing [Not Recovered/Not Resolved]
  - Myalgia [Not Recovered/Not Resolved]
  - Rheumatoid arthritis [Not Recovered/Not Resolved]
  - Red blood cell count decreased [Not Recovered/Not Resolved]
  - Muscular weakness [Not Recovered/Not Resolved]
  - Peripheral swelling [Not Recovered/Not Resolved]
  - Lung disorder [Not Recovered/Not Resolved]
  - Hand deformity [Not Recovered/Not Resolved]
  - Swelling face [Not Recovered/Not Resolved]
  - Dry eye [Not Recovered/Not Resolved]
  - Upper respiratory tract infection [Not Recovered/Not Resolved]
  - Conjunctivitis [Not Recovered/Not Resolved]
  - Fibromyalgia [Not Recovered/Not Resolved]
  - Diarrhoea [Not Recovered/Not Resolved]
  - Inflammation [Not Recovered/Not Resolved]
  - Eye irritation [Not Recovered/Not Resolved]
  - Visual impairment [Not Recovered/Not Resolved]
  - Cushingoid [Not Recovered/Not Resolved]
  - Allergy to chemicals [Not Recovered/Not Resolved]
  - Nausea [Not Recovered/Not Resolved]
  - Pulmonary toxicity [Not Recovered/Not Resolved]
  - Back pain [Not Recovered/Not Resolved]
  - Joint effusion [Not Recovered/Not Resolved]
  - Rash [Not Recovered/Not Resolved]
  - Dizziness [Not Recovered/Not Resolved]
  - Antinuclear antibody positive [Not Recovered/Not Resolved]
  - Liver disorder [Not Recovered/Not Resolved]
  - Infection [Not Recovered/Not Resolved]
  - Feeling abnormal [Not Recovered/Not Resolved]
  - Erythema [Not Recovered/Not Resolved]
  - Thrombosis [Not Recovered/Not Resolved]
  - Nodule [Not Recovered/Not Resolved]
  - Musculoskeletal stiffness [Not Recovered/Not Resolved]
  - Joint swelling [Not Recovered/Not Resolved]
  - Abdominal pain [Not Recovered/Not Resolved]
  - Haemoglobin decreased [Not Recovered/Not Resolved]
  - Flank pain [Not Recovered/Not Resolved]
  - Atelectasis [Not Recovered/Not Resolved]
  - Feeling jittery [Not Recovered/Not Resolved]
  - Pleuritic pain [Not Recovered/Not Resolved]
  - Joint range of motion decreased [Not Recovered/Not Resolved]
  - Fatigue [Not Recovered/Not Resolved]
  - Impaired work ability [Not Recovered/Not Resolved]
  - Deformity [Not Recovered/Not Resolved]
  - Neoplasm malignant [Not Recovered/Not Resolved]
  - Pruritus [Not Recovered/Not Resolved]
  - Drug ineffective [Unknown]
  - Off label use [Unknown]
  - Treatment failure [Unknown]
  - Contraindicated product administered [Not Recovered/Not Resolved]
  - Therapeutic product effect decreased [Unknown]
